FAERS Safety Report 6644119-3 (Version None)
Quarter: 2010Q1

REPORT INFORMATION
  Report Type: 
  Country: None (occurrence: None)
  Receive Date: 20100322
  Receipt Date: 20100311
  Transmission Date: 20100710
  Serious: Yes (Disabling, Other)
  Sender: FDA-Public Use
  Company Number: PHHY2010CA09752

PATIENT
  Sex: Female
  Weight: 48 kg

DRUGS (2)
  1. EXELON [Suspect]
     Indication: DEMENTIA ALZHEIMER'S TYPE
     Dosage: 5 CM, UNK
     Route: 062
     Dates: start: 20090804, end: 20091202
  2. EXELON [Suspect]
     Dosage: 10 CM, UNK
     Route: 062
     Dates: end: 20100110

REACTIONS (3)
  - AGGRESSION [None]
  - CONFUSIONAL STATE [None]
  - DEPRESSION [None]
